FAERS Safety Report 9881533 (Version 3)
Quarter: 2014Q1

REPORT INFORMATION
  Report Type: Spontaneous
  Country: IT (occurrence: IT)
  Receive Date: 20140207
  Receipt Date: 20140314
  Transmission Date: 20141002
  Serious: Yes (Hospitalization)
  Sender: FDA-Public Use
  Company Number: IT-B.I. PHARMACEUTICALS,INC./RIDGEFIELD-2014-BI-05295IT

PATIENT
  Age: 65 Year
  Sex: Male
  Weight: 78 kg

DRUGS (4)
  1. PRADAXA [Suspect]
     Indication: ATRIAL FIBRILLATION
     Dosage: 300 MG
     Route: 048
     Dates: start: 20140113, end: 20140131
  2. PRILACE [Concomitant]
     Indication: HYPERTENSION
     Dosage: STENGTH: 5MG + 6MG; DOSAGE: 5MG
     Route: 048
  3. CONGESCOR [Concomitant]
     Route: 065
  4. GLUCOPHAGE [Concomitant]
     Indication: TYPE 2 DIABETES MELLITUS
     Dosage: 1000 MG
     Route: 048

REACTIONS (2)
  - Dermatitis exfoliative [Not Recovered/Not Resolved]
  - Face oedema [Not Recovered/Not Resolved]
